FAERS Safety Report 5124307-8 (Version None)
Quarter: 2006Q4

REPORT INFORMATION
  Report Type: 
  Country: None (occurrence: None)
  Receive Date: 20061010
  Receipt Date: 20061004
  Transmission Date: 20070319
  Serious: Yes (Other)
  Sender: FDA-Public Use
  Company Number: DK-BOEHRINGER INGELHEIM PHARMACEUTICALS, INC.-2006-SW-00405DB

PATIENT
  Age: 61 Year
  Sex: Female

DRUGS (2)
  1. SIFROL TAB. 0.7 MG [Suspect]
     Indication: PARKINSON'S DISEASE
     Dates: start: 20060814, end: 20061001
  2. MADOPAR [Concomitant]
     Indication: PARKINSON'S DISEASE

REACTIONS (5)
  - ANGIONEUROTIC OEDEMA [None]
  - DYSPNOEA [None]
  - PHARYNGEAL OEDEMA [None]
  - RASH GENERALISED [None]
  - SWOLLEN TONGUE [None]
